FAERS Safety Report 6152988-9 (Version None)
Quarter: 2009Q2

REPORT INFORMATION
  Report Type: 
  Country: None (occurrence: None)
  Receive Date: 20090409
  Receipt Date: 20090325
  Transmission Date: 20091009
  Serious: Yes (Hospitalization)
  Sender: FDA-Public Use
  Company Number: 2009SP000877

PATIENT
  Age: 59 Year
  Sex: Female

DRUGS (4)
  1. CICLESONIDE HFA (CICLESONIDE HFA) [Suspect]
     Indication: CHRONIC OBSTRUCTIVE PULMONARY DISEASE
     Dosage: INHALATION
     Route: 055
     Dates: start: 20090311, end: 20090316
  2. FENOTEROL [Concomitant]
  3. FORMOTEROL [Concomitant]
  4. VIANI [Concomitant]

REACTIONS (5)
  - DRUG INTOLERANCE [None]
  - MUCOUS MEMBRANE DISORDER [None]
  - ODYNOPHAGIA [None]
  - OROPHARYNGEAL PAIN [None]
  - SENSATION OF FOREIGN BODY [None]
